FAERS Safety Report 10518763 (Version 1)
Quarter: 2014Q4

REPORT INFORMATION
  Report Type: Report from Study
  Country: CA (occurrence: CA)
  Receive Date: 20141015
  Receipt Date: 20141015
  Transmission Date: 20150528
  Serious: Yes (Death, Hospitalization)
  Sender: FDA-Public Use
  Company Number: CA-JNJFOC-20141008859

PATIENT
  Age: 47 Year
  Sex: Male

DRUGS (3)
  1. ALCOHOL. [Suspect]
     Active Substance: ALCOHOL
     Indication: PRODUCT USED FOR UNKNOWN INDICATION
     Route: 048
  2. PARACETAMOL [Suspect]
     Active Substance: ACETAMINOPHEN
     Indication: ARTHRITIS
     Dosage: 4 TO 8 TYLENOL, 3 TO 4 TIMES
     Route: 048
     Dates: start: 19980901, end: 19981230
  3. OTHER THERAPEUTIC AGENT [Suspect]
     Active Substance: UNSPECIFIED INGREDIENT
     Indication: PRODUCT USED FOR UNKNOWN INDICATION
     Route: 048

REACTIONS (5)
  - Hepatitis B [Unknown]
  - Drug abuse [Fatal]
  - Alcohol abuse [Unknown]
  - Multi-organ failure [Fatal]
  - Acute hepatic failure [Fatal]
